FAERS Safety Report 5735690-4 (Version None)
Quarter: 2008Q2

REPORT INFORMATION
  Report Type: 
  Country: None (occurrence: None)
  Receive Date: 20080512
  Receipt Date: 20080506
  Transmission Date: 20081010
  Serious: Yes (Hospitalization)
  Sender: FDA-Public Use
  Company Number: AT-MERCK-0805AUT00001

PATIENT
  Sex: Male

DRUGS (3)
  1. SINGULAIR [Suspect]
     Indication: ALLERGIC SINUSITIS
     Route: 048
     Dates: end: 20080401
  2. DESLORATADINE [Concomitant]
     Indication: ALLERGIC SINUSITIS
     Route: 065
  3. BUDESONIDE AND FORMOTEROL FUMARATE [Concomitant]
     Indication: ALLERGIC SINUSITIS
     Route: 065

REACTIONS (3)
  - ALLERGIC GRANULOMATOUS ANGIITIS [None]
  - PNEUMONIA [None]
  - RESPIRATORY FAILURE [None]
